FAERS Safety Report 18366936 (Version 4)
Quarter: 2020Q4

REPORT INFORMATION
  Report Type: Report from Study
  Country: US (occurrence: US)
  Receive Date: 20201009
  Receipt Date: 20201204
  Transmission Date: 20210114
  Serious: Yes (Death)
  Sender: FDA-Public Use
  Company Number: US-PFIZER INC-2020388167

PATIENT
  Age: 80 Year
  Sex: Male
  Weight: 80.27 kg

DRUGS (1)
  1. TAFAMIDIS MEGLUMINE [Suspect]
     Active Substance: TAFAMIDIS MEGLUMINE
     Dosage: 80 MG, 1X/DAY
     Dates: start: 20190828

REACTIONS (1)
  - Death [Fatal]

NARRATIVE: CASE EVENT DATE: 20191008
